FAERS Safety Report 5721547-1 (Version None)
Quarter: 2008Q2

REPORT INFORMATION
  Report Type: 
  Country: None (occurrence: None)
  Receive Date: 20080429
  Receipt Date: 20070327
  Transmission Date: 20081010
  Serious: No
  Sender: FDA-Public Use
  Company Number: US-ASTRAZENECA-2007UW06284

PATIENT
  Sex: Female

DRUGS (4)
  1. NEXIUM [Suspect]
     Route: 048
     Dates: start: 20061001
  2. NEXIUM [Suspect]
     Route: 048
     Dates: start: 20070101
  3. ASPIRIN [Concomitant]
  4. SMALL VITAMIN [Concomitant]

REACTIONS (1)
  - CHROMATURIA [None]
